FAERS Safety Report 7720371-8 (Version None)
Quarter: 2011Q3

REPORT INFORMATION
  Report Type: 
  Country: None (occurrence: None)
  Receive Date: 20110831
  Receipt Date: 20110818
  Transmission Date: 20111222
  Serious: No
  Sender: FDA-Public Use
  Company Number: JP-UCBSA-038199

PATIENT
  Sex: Female

DRUGS (2)
  1. X-RAY CONTRAST AGENT [Suspect]
  2. KEPPRA [Suspect]
     Route: 048

REACTIONS (1)
  - PLATELET COUNT DECREASED [None]
